FAERS Safety Report 6113803-2 (Version None)
Quarter: 2009Q1

REPORT INFORMATION
  Report Type: 
  Country: None (occurrence: None)
  Receive Date: 20090312
  Receipt Date: 20090227
  Transmission Date: 20090719
  Serious: Yes (Death)
  Sender: FDA-Public Use
  Company Number: US-ELI_LILLY_AND_COMPANY-US200903000488

PATIENT
  Age: 56 Year
  Sex: Male

DRUGS (3)
  1. ZYPREXA [Suspect]
     Indication: PSYCHOTIC DISORDER
     Dosage: 10 MG, UNK
     Dates: start: 20090101
  2. MORPHINE [Concomitant]
     Dosage: 1 MG, EVERY 4 HRS
  3. MORPHINE [Concomitant]
     Dosage: 4 MG, EVERY 4 HRS
     Dates: start: 20090101

REACTIONS (2)
  - CORONARY ARTERY DISEASE [None]
  - SUDDEN CARDIAC DEATH [None]
